FAERS Safety Report 10153817 (Version 3)
Quarter: 2014Q2

REPORT INFORMATION
  Report Type: Spontaneous
  Country: GB (occurrence: GB)
  Receive Date: 20140506
  Receipt Date: 20140515
  Transmission Date: 20141212
  Serious: Yes (Other)
  Sender: FDA-Public Use
  Company Number: GB-ROCHE-1342171

PATIENT
  Age: 44 Year
  Sex: 0
  Weight: 90.8 kg

DRUGS (3)
  1. HERCEPTIN [Suspect]
     Indication: BREAST CANCER METASTATIC
     Dosage: CHANGED TO INTRAVENOUS TO BE GIVEN NEXT ON 16/MAY/2014
     Route: 058
     Dates: start: 20140110
  2. ZOMETA [Concomitant]
     Indication: BREAST CANCER METASTATIC
     Route: 042
     Dates: start: 20110707
  3. FASLODEX [Concomitant]
     Indication: BREAST CANCER METASTATIC
     Route: 030
     Dates: start: 20111201

REACTIONS (6)
  - Infusion related reaction [Unknown]
  - Headache [Unknown]
  - Nausea [Not Recovered/Not Resolved]
  - Pain in extremity [Not Recovered/Not Resolved]
  - Muscular weakness [Not Recovered/Not Resolved]
  - Pain [Not Recovered/Not Resolved]
